FAERS Safety Report 21297328 (Version 1)
Quarter: 2022Q3

REPORT INFORMATION
  Report Type: Spontaneous
  Country: US (occurrence: None)
  Receive Date: 20220902
  Receipt Date: 20220902
  Transmission Date: 20221027
  Serious: Yes (Other)
  Sender: FDA-Public Use
  Company Number: None

PATIENT
  Age: 11 Year
  Sex: Male

DRUGS (12)
  1. OPSUMIT [Suspect]
     Active Substance: MACITENTAN
     Indication: Pulmonary arterial hypertension
     Dosage: FREQUENCY : DAILY;?
     Route: 048
     Dates: start: 20220805
  2. TADALAFIL [Suspect]
     Active Substance: TADALAFIL
  3. AMINOCAPROIC ACID [Concomitant]
     Active Substance: AMINOCAPROIC ACID
  4. SODIUM FLUORIDE [Concomitant]
     Active Substance: SODIUM FLUORIDE
  5. QUETIAPINE [Concomitant]
     Active Substance: QUETIAPINE
  6. PHYTONADIONE [Concomitant]
     Active Substance: PHYTONADIONE
  7. FLONASE [Concomitant]
     Active Substance: FLUTICASONE PROPIONATE
  8. alvesco HFA [Concomitant]
  9. ALBUTEROL SULFATE [Concomitant]
     Active Substance: ALBUTEROL SULFATE
  10. ALBUTEROL [Concomitant]
     Active Substance: ALBUTEROL
  11. GABAPENTIN [Concomitant]
     Active Substance: GABAPENTIN
  12. VITAMINS [Concomitant]
     Active Substance: VITAMINS

REACTIONS (13)
  - Mouth haemorrhage [None]
  - Mouth injury [None]
  - Mouth injury [None]
  - Tongue biting [None]
  - Mucosal dryness [None]
  - Epistaxis [None]
  - Platelet count decreased [None]
  - Haemoglobin decreased [None]
  - Haematocrit decreased [None]
  - Lip haemorrhage [None]
  - Lip injury [None]
  - Tooth disorder [None]
  - Gingival injury [None]

NARRATIVE: CASE EVENT DATE: 20220824
